FAERS Safety Report 8451957-3 (Version None)
Quarter: 2012Q2

REPORT INFORMATION
  Report Type: 
  Country: None (occurrence: None)
  Receive Date: 20120620
  Receipt Date: 20120326
  Transmission Date: 20120825
  Serious: No
  Sender: FDA-Public Use
  Company Number: US-VERTEX PHARMACEUTICALS INC.-AE-2012-004381

PATIENT
  Sex: Male
  Weight: 70.37 kg

DRUGS (6)
  1. RIBAVIRIN [Concomitant]
     Indication: HEPATITIS C
     Dates: start: 20120210, end: 20120224
  2. INCIVEK [Suspect]
     Route: 048
     Dates: start: 20120309, end: 20120323
  3. RIBAVIRIN [Concomitant]
     Dates: start: 20120309, end: 20120323
  4. PEGASYS [Concomitant]
     Route: 058
     Dates: start: 20120309, end: 20120323
  5. INCIVEK [Suspect]
     Indication: HEPATITIS C
     Route: 048
     Dates: start: 20120210, end: 20120224
  6. PEGASYS [Concomitant]
     Indication: HEPATITIS C
     Route: 058
     Dates: start: 20120210, end: 20120224

REACTIONS (5)
  - RASH VESICULAR [None]
  - HAEMORRHOIDS [None]
  - WHITE BLOOD CELL DISORDER [None]
  - ANAEMIA [None]
  - PAINFUL DEFAECATION [None]
